FAERS Safety Report 9693805 (Version 1)
Quarter: 2013Q4

REPORT INFORMATION
  Report Type: Spontaneous
  Country: BE (occurrence: BE)
  Receive Date: 20131118
  Receipt Date: 20131118
  Transmission Date: 20140711
  Serious: Yes (Other)
  Sender: FDA-Public Use
  Company Number: PHHY2013BE130441

PATIENT
  Sex: 0

DRUGS (1)
  1. AMIODARONE [Suspect]

REACTIONS (2)
  - Cardiac arrest [Unknown]
  - Torsade de pointes [Unknown]
